FAERS Safety Report 20206011 (Version 1)
Quarter: 2021Q4

REPORT INFORMATION
  Report Type: Report from Study
  Country: ES (occurrence: ES)
  Receive Date: 20211220
  Receipt Date: 20211220
  Transmission Date: 20220303
  Serious: Yes (Other)
  Sender: FDA-Public Use
  Company Number: ES-NOVARTISPH-NVSC2020ES056813

PATIENT
  Sex: Female

DRUGS (2)
  1. TAFINLAR [Suspect]
     Active Substance: DABRAFENIB MESYLATE
     Indication: Malignant melanoma
     Dosage: UNK
     Route: 065
     Dates: start: 201902, end: 202002
  2. MEKINIST [Suspect]
     Active Substance: TRAMETINIB DIMETHYL SULFOXIDE
     Indication: Malignant melanoma
     Dosage: UNK
     Route: 065
     Dates: start: 201902, end: 202002

REACTIONS (3)
  - Aortic valve incompetence [Unknown]
  - Fatigue [Recovered/Resolved]
  - Rash maculo-papular [Recovered/Resolved]

NARRATIVE: CASE EVENT DATE: 20190101
